FAERS Safety Report 8952516 (Version 3)
Quarter: 2013Q1

REPORT INFORMATION
  Report Type: Spontaneous
  Country: US (occurrence: US)
  Receive Date: 20121205
  Receipt Date: 20130313
  Transmission Date: 20140127
  Serious: Yes (Hospitalization)
  Sender: FDA-Public Use
  Company Number: US-BAYER-2012-127122

PATIENT
  Age: 15 Year
  Sex: Female
  Weight: 90.7 kg

DRUGS (9)
  1. YAZ [Suspect]
     Indication: PREMENSTRUAL DYSPHORIC DISORDER
     Dosage: UNK
     Dates: start: 20090917, end: 20110903
  2. YAZ [Suspect]
     Indication: OVARIAN CYST
  3. ADVAIR [Concomitant]
     Dosage: UNK
     Dates: start: 2003
  4. ALBUTEROL [Concomitant]
     Dosage: UNK
     Dates: start: 2003
  5. PREDNISONE [Concomitant]
  6. ROCEPHIN [Concomitant]
  7. Z-PAK [Concomitant]
  8. CEFPROZIL [Concomitant]
  9. CLARITHROMYCIN [Concomitant]

REACTIONS (10)
  - Pulmonary embolism [Recovered/Resolved]
  - Pain [None]
  - Injury [Recovered/Resolved]
  - General physical health deterioration [Recovered/Resolved]
  - Anxiety [None]
  - Anhedonia [None]
  - Emotional distress [None]
  - Pain [Recovered/Resolved]
  - Abasia [Recovered/Resolved]
  - Dyspnoea [Recovered/Resolved]
